FAERS Safety Report 9445278 (Version 1)
Quarter: 2013Q3

REPORT INFORMATION
  Report Type: Spontaneous
  Country: NL (occurrence: NL)
  Receive Date: 20130807
  Receipt Date: 20130807
  Transmission Date: 20140515
  Serious: Yes (Hospitalization)
  Sender: FDA-Public Use
  Company Number: NL-GLAXOSMITHKLINE-B0913614A

PATIENT
  Age: 37 Year
  Sex: Female

DRUGS (1)
  1. VENTOLIN [Suspect]
     Indication: PRODUCT USED FOR UNKNOWN INDICATION
     Route: 055

REACTIONS (7)
  - Uterine hypotonus [Unknown]
  - Albuminuria [Unknown]
  - Oedema [Unknown]
  - Hypertension [Unknown]
  - Blood albumin increased [Unknown]
  - Live birth [Unknown]
  - Exposure during pregnancy [Unknown]
